FAERS Safety Report 5191045-5 (Version None)
Quarter: 2006Q4

REPORT INFORMATION
  Report Type: 
  Country: None (occurrence: None)
  Receive Date: 20061226
  Receipt Date: 20061212
  Transmission Date: 20070319
  Serious: Yes (Hospitalization)
  Sender: FDA-Public Use
  Company Number: 2006SE06665

PATIENT
  Age: 82 Year
  Sex: Male

DRUGS (8)
  1. KENZEN [Suspect]
     Indication: DRUG USE FOR UNKNOWN INDICATION
     Route: 048
     Dates: end: 20060707
  2. BISOPROLOL FUMARATE [Suspect]
     Indication: DRUG USE FOR UNKNOWN INDICATION
     Route: 048
  3. ISOPTIN [Suspect]
     Indication: ACUTE PULMONARY OEDEMA
     Route: 048
     Dates: start: 20051201, end: 20060601
  4. ISOPTIN [Suspect]
     Route: 048
     Dates: start: 20060602, end: 20060707
  5. PLAVIX [Concomitant]
     Indication: DRUG USE FOR UNKNOWN INDICATION
     Route: 048
  6. CORDARONE [Concomitant]
     Indication: DRUG USE FOR UNKNOWN INDICATION
     Route: 048
  7. FONZYLANE [Concomitant]
     Indication: DRUG USE FOR UNKNOWN INDICATION
     Route: 065
     Dates: end: 20060707
  8. PRAVASTATIN [Concomitant]
     Indication: DRUG USE FOR UNKNOWN INDICATION
     Route: 065
     Dates: end: 20060707

REACTIONS (10)
  - ANAEMIA [None]
  - FALL [None]
  - HYPERKALAEMIA [None]
  - IATROGENIC INJURY [None]
  - LOSS OF CONSCIOUSNESS [None]
  - MALAISE [None]
  - ORTHOSTATIC HYPOTENSION [None]
  - RENAL FAILURE [None]
  - STENT PLACEMENT [None]
  - VOMITING [None]
